FAERS Safety Report 8883008 (Version 1)
Quarter: 2012Q4

REPORT INFORMATION
  Report Type: 
  Country: BR (occurrence: BR)
  Receive Date: 20121102
  Receipt Date: 20121102
  Transmission Date: 20130627
  Serious: Yes (Other)
  Sender: FDA-Public Use
  Company Number: PHHY2012BR099162

PATIENT
  Sex: Female

DRUGS (3)
  1. DIOVAN TRIPLE [Suspect]
     Dosage: 1 DF (1 tablet in the morning and 1 tablet at night (9am and 9pm)) BID
  2. DIOVAN AMLO FIX [Suspect]
  3. DIOVAN [Suspect]

REACTIONS (2)
  - Tachycardia [Recovering/Resolving]
  - Blood pressure diastolic decreased [Recovering/Resolving]
